FAERS Safety Report 14066384 (Version 2)
Quarter: 2017Q4

REPORT INFORMATION
  Report Type: Spontaneous
  Country: SE (occurrence: SE)
  Receive Date: 20171009
  Receipt Date: 20171019
  Transmission Date: 20180321
  Serious: Yes (Other)
  Sender: FDA-Public Use
  Company Number: SE-MYLANLABS-2017M1061351

PATIENT
  Age: 51 Year
  Sex: Female

DRUGS (6)
  1. VITAMIN B [Concomitant]
     Active Substance: VITAMIN B
     Indication: PRODUCT USED FOR UNKNOWN INDICATION
  2. OMEPRAZOLE. [Concomitant]
     Active Substance: OMEPRAZOLE
     Indication: PRODUCT USED FOR UNKNOWN INDICATION
  3. OLANZAPINE MYLAN [Suspect]
     Active Substance: OLANZAPINE
     Dosage: 1 DF, QD
     Dates: start: 20170929
  4. MAGNESIUM [Concomitant]
     Active Substance: MAGNESIUM
     Indication: PRODUCT USED FOR UNKNOWN INDICATION
  5. OLANZAPINE MYLAN [Suspect]
     Active Substance: OLANZAPINE
     Dosage: 0.5 DF, QD
     Dates: end: 20170928
  6. OLANZAPINE MYLAN [Suspect]
     Active Substance: OLANZAPINE
     Indication: SLEEP DISORDER
     Dosage: 1 DF, QD (2.5 YEARS AGO)

REACTIONS (7)
  - Increased appetite [Unknown]
  - Pain [Recovered/Resolved]
  - Suicidal ideation [Unknown]
  - Muscle twitching [Recovered/Resolved]
  - Loss of libido [Unknown]
  - Product use in unapproved indication [Unknown]
  - Weight increased [Unknown]

NARRATIVE: CASE EVENT DATE: 20170925
